FAERS Safety Report 8187191-4 (Version None)
Quarter: 2012Q1

REPORT INFORMATION
  Report Type: 
  Country: None (occurrence: None)
  Receive Date: 20120306
  Receipt Date: 20120228
  Transmission Date: 20120608
  Serious: Yes (Other)
  Sender: FDA-Public Use
  Company Number: US-PFIZER INC-2012053947

PATIENT
  Sex: Male

DRUGS (1)
  1. LYRICA [Suspect]
     Dosage: UNK

REACTIONS (5)
  - ANGER [None]
  - OBSESSIVE-COMPULSIVE DISORDER [None]
  - SCREAMING [None]
  - EMOTIONAL DISORDER [None]
  - HAND FRACTURE [None]
